FAERS Safety Report 8715200 (Version 5)
Quarter: 2012Q4

REPORT INFORMATION
  Report Type: 
  Country: JP (occurrence: JP)
  Receive Date: 20120809
  Receipt Date: 20121022
  Transmission Date: 20130627
  Serious: Yes (Other)
  Sender: FDA-Public Use
  Company Number: JP-PFIZER INC-2012192071

PATIENT
  Age: 79 Year
  Sex: Male

DRUGS (3)
  1. CELECOX [Suspect]
     Indication: OSTEOARTHRITIS
     Dosage: 100 mg, 2x/day
     Route: 048
     Dates: start: 20120524, end: 20120728
  2. CELECOX [Suspect]
     Indication: JOINT EFFUSION
  3. DAI-BOFU-TO [Suspect]
     Indication: OSTEOARTHRITIS
     Dosage: 3.5 g, 2x/day
     Route: 048
     Dates: start: 20120524, end: 20120903

REACTIONS (2)
  - Urinary retention [Not Recovered/Not Resolved]
  - Urethral stenosis [Unknown]
